FAERS Safety Report 8718300 (Version 5)
Quarter: 2012Q4

REPORT INFORMATION
  Report Type: Report from Study
  Country: HU (occurrence: HU)
  Receive Date: 20120810
  Receipt Date: 20121005
  Transmission Date: 20130627
  Serious: Yes (Death)
  Sender: FDA-Public Use
  Company Number: HU-GLAXOSMITHKLINE-Z0016593A

PATIENT
  Age: 55 Year
  Sex: Male
  Weight: 95 kg

DRUGS (5)
  1. OFATUMUMAB [Suspect]
     Indication: CHRONIC LYMPHOCYTIC LEUKAEMIA REFRACTORY
     Route: 042
     Dates: start: 20120612, end: 20120731
  2. ORADEXON [Concomitant]
     Indication: HYPERCALCAEMIA
     Dosage: 20MG Per day
     Route: 042
     Dates: start: 20120807, end: 20120809
  3. QUAMATEL [Concomitant]
     Indication: PROPHYLAXIS
     Dosage: 20MG Per day
     Route: 042
     Dates: start: 20120807, end: 20120809
  4. MIACALCIC [Concomitant]
     Indication: HYPERCALCAEMIA
     Dosage: 3 per day
     Route: 042
     Dates: start: 20120807, end: 20120809
  5. CERUCAL [Concomitant]
     Indication: NAUSEA
     Dosage: 1 per day
     Route: 042
     Dates: start: 20120808, end: 20120808

REACTIONS (1)
  - Renal failure [Fatal]
